FAERS Safety Report 5809917-4 (Version None)
Quarter: 2008Q3

REPORT INFORMATION
  Report Type: 
  Country: None (occurrence: None)
  Receive Date: 20080714
  Receipt Date: 20080714
  Transmission Date: 20090109
  Serious: No
  Sender: FDA-Public Use
  Company Number: None

PATIENT
  Age: 53 Year
  Sex: Female
  Weight: 63.05 kg

DRUGS (2)
  1. ZOMETA [Suspect]
  2. BONIVA [Suspect]

REACTIONS (3)
  - ATRIAL FIBRILLATION [None]
  - CARDIAC FLUTTER [None]
  - HEART RATE INCREASED [None]
